FAERS Safety Report 24033288 (Version 1)
Quarter: 2024Q3

REPORT INFORMATION
  Report Type: Report from Study
  Country: US (occurrence: US)
  Receive Date: 20240701
  Receipt Date: 20240701
  Transmission Date: 20241017
  Serious: Yes (Other)
  Sender: ABBVIE
  Company Number: US-ABBVIE-5819376

PATIENT
  Sex: Female

DRUGS (1)
  1. SKYRIZI [Suspect]
     Active Substance: RISANKIZUMAB-RZAA
     Indication: Psoriasis
     Route: 058
     Dates: start: 20200819

REACTIONS (7)
  - Cardiac failure [Recovering/Resolving]
  - Glucose tolerance impaired [Recovering/Resolving]
  - Joint dislocation [Not Recovered/Not Resolved]
  - Arthritis [Recovering/Resolving]
  - Atrial fibrillation [Recovering/Resolving]
  - Psoriatic arthropathy [Recovering/Resolving]
  - Finger amputation [Recovered/Resolved]
